FAERS Safety Report 16814437 (Version 1)
Quarter: 2019Q3

REPORT INFORMATION
  Report Type: Spontaneous
  Country: US (occurrence: US)
  Receive Date: 20190917
  Receipt Date: 20190917
  Transmission Date: 20191005
  Serious: No
  Sender: FDA-Public Use
  Company Number: US-ALLERGAN-1906298US

PATIENT
  Age: 67 Year
  Sex: Male

DRUGS (2)
  1. LINZESS [Suspect]
     Active Substance: LINACLOTIDE
     Indication: CONSTIPATION
     Dosage: 72 MCG ONCE DAILY
     Route: 065
  2. LINZESS [Suspect]
     Active Substance: LINACLOTIDE
     Dosage: 72 MCG ONCE DAILY
     Route: 065

REACTIONS (6)
  - Flatulence [Unknown]
  - Constipation [Unknown]
  - Incorrect dose administered [Unknown]
  - Drug ineffective [Unknown]
  - Faeces hard [Unknown]
  - Abdominal pain upper [Unknown]
